FAERS Safety Report 15951637 (Version 2)
Quarter: 2019Q1

REPORT INFORMATION
  Report Type: Spontaneous
  Country: US (occurrence: US)
  Receive Date: 20190211
  Receipt Date: 20190318
  Transmission Date: 20190417
  Serious: Yes (Other)
  Sender: FDA-Public Use
  Company Number: US-ALEXION PHARMACEUTICALS INC-A201901900

PATIENT
  Sex: Female

DRUGS (10)
  1. COZAAR [Concomitant]
     Active Substance: LOSARTAN POTASSIUM
     Indication: PRODUCT USED FOR UNKNOWN INDICATION
     Dosage: 25 MG, UNK
     Route: 065
  2. FIORINAL [Concomitant]
     Active Substance: ASPIRIN\BUTALBITAL\CAFFEINE
     Indication: PRODUCT USED FOR UNKNOWN INDICATION
     Dosage: 50-325-40, Q4H PRN
     Route: 065
  3. STRENSIQ [Suspect]
     Active Substance: ASFOTASE ALFA
     Dosage: 80 MG, 4 TIMES WEEKLY
     Route: 065
     Dates: start: 201606
  4. PRAVASTATIN. [Concomitant]
     Active Substance: PRAVASTATIN
     Indication: PRODUCT USED FOR UNKNOWN INDICATION
     Dosage: 10 MG, UNK
     Route: 065
  5. STRENSIQ [Suspect]
     Active Substance: ASFOTASE ALFA
     Indication: HYPOPHOSPHATASIA
     Dosage: UNK
     Route: 065
  6. ZANTAC [Concomitant]
     Active Substance: RANITIDINE HYDROCHLORIDE
     Indication: PRODUCT USED FOR UNKNOWN INDICATION
     Dosage: 150 MG, TID
     Route: 065
  7. VITAMIN D3 [Concomitant]
     Active Substance: CHOLECALCIFEROL
     Indication: PRODUCT USED FOR UNKNOWN INDICATION
     Dosage: 5000 IU, UNK
     Route: 065
  8. STRENSIQ [Suspect]
     Active Substance: ASFOTASE ALFA
     Dosage: 80 MG, 3 TIMES WEEKLY
     Route: 065
     Dates: start: 201602
  9. ASPIRIN                            /00002701/ [Concomitant]
     Active Substance: ASPIRIN
     Indication: PRODUCT USED FOR UNKNOWN INDICATION
     Dosage: 650 MG, UNK
     Route: 065
  10. NEURONTIN [Concomitant]
     Active Substance: GABAPENTIN
     Indication: PRODUCT USED FOR UNKNOWN INDICATION
     Dosage: 300 MG, PRN
     Route: 065

REACTIONS (8)
  - Blood parathyroid hormone increased [Unknown]
  - Insomnia [Unknown]
  - Injection site pruritus [Unknown]
  - Fatigue [Not Recovered/Not Resolved]
  - Injection site erythema [Unknown]
  - Vitamin D decreased [Unknown]
  - Lipodystrophy acquired [Unknown]
  - Nephrocalcinosis [Unknown]
